FAERS Safety Report 7833590-7 (Version None)
Quarter: 2011Q4

REPORT INFORMATION
  Report Type: 
  Country: None (occurrence: None)
  Receive Date: 20111024
  Receipt Date: 20111013
  Transmission Date: 20120403
  Serious: Yes (Other)
  Sender: FDA-Public Use
  Company Number: GB-BRISTOL-MYERS SQUIBB COMPANY-16156986

PATIENT
  Age: 49 Year
  Sex: Male

DRUGS (2)
  1. PREDNISOLONE [Concomitant]
     Indication: PHLEBITIS
     Dosage: RAPIDLY REDUCED TO 25MG OVER 2 WEEKS
     Route: 048
  2. TRIAMCINOLONE ACETONIDE [Suspect]
     Indication: UVEITIS
     Dosage: INTRAVITREAL

REACTIONS (9)
  - VISUAL ACUITY REDUCED [None]
  - EYE INFECTION TOXOPLASMAL [None]
  - EYE INFLAMMATION [None]
  - NECROTISING RETINITIS [None]
  - RETINAL DETACHMENT [None]
  - CONDITION AGGRAVATED [None]
  - UVEITIS [None]
  - ARTERITIS [None]
  - SUBRETINAL FIBROSIS [None]
